FAERS Safety Report 7327095-X (Version None)
Quarter: 2011Q1

REPORT INFORMATION
  Report Type: 
  Country: None (occurrence: None)
  Receive Date: 20110302
  Receipt Date: 20110221
  Transmission Date: 20110831
  Serious: Yes (Death)
  Sender: FDA-Public Use
  Company Number: JP-SANOFI-AVENTIS-2010SA073047

PATIENT
  Age: 81 Year
  Sex: Male
  Weight: 49 kg

DRUGS (15)
  1. ASPIRIN [Concomitant]
     Indication: ANGINA UNSTABLE
     Route: 048
     Dates: start: 20060315
  2. POLARAMINE [Concomitant]
     Indication: PROPHYLAXIS
     Route: 048
     Dates: start: 20060502
  3. RENAGEL [Concomitant]
     Route: 048
     Dates: start: 20090717
  4. CALCIUM POLYSTYRENE SULFONATE [Concomitant]
     Route: 048
     Dates: start: 20060327
  5. LAC-B [Concomitant]
     Indication: PROPHYLAXIS
     Route: 048
     Dates: start: 20090313
  6. DIART [Concomitant]
     Route: 048
     Dates: start: 20020822
  7. PANCREAZE [Concomitant]
     Indication: PROPHYLAXIS
     Route: 048
     Dates: start: 20090313
  8. OMEPRAZON [Concomitant]
     Indication: PROPHYLAXIS
     Route: 048
     Dates: start: 20060822
  9. LASIX [Concomitant]
     Route: 048
     Dates: start: 20060327
  10. MITIGLINIDE [Concomitant]
     Route: 048
     Dates: start: 20080408
  11. ADALAT CC [Concomitant]
     Route: 048
     Dates: start: 20041007
  12. PLAVIX [Suspect]
     Indication: ANGINA UNSTABLE
     Route: 048
     Dates: start: 20091028, end: 20100602
  13. VOGLIBOSE [Concomitant]
     Route: 048
     Dates: start: 20080408
  14. COLONEL [Concomitant]
     Indication: PROPHYLAXIS
     Route: 048
     Dates: start: 20080912
  15. BLOPRESS [Concomitant]
     Route: 048
     Dates: start: 20041007

REACTIONS (1)
  - DROWNING [None]
